FAERS Safety Report 5393088-5 (Version None)
Quarter: 2007Q3

REPORT INFORMATION
  Report Type: 
  Country: None (occurrence: None)
  Receive Date: 20070719
  Receipt Date: 20070710
  Transmission Date: 20080115
  Serious: Yes (Hospitalization)
  Sender: FDA-Public Use
  Company Number: E2020-01385-SPO-JP

PATIENT
  Age: 73 Year
  Sex: Female

DRUGS (11)
  1. ARICEPT [Suspect]
     Indication: DEMENTIA ALZHEIMER'S TYPE
     Dosage: 5 MG, 1 IN 1 D, ORAL
     Route: 048
     Dates: start: 20070525, end: 20070623
  2. URSO 250 [Concomitant]
  3. AMLODIPINE BESYLATE [Concomitant]
  4. SILECE (FLUNITRAZEPAM) [Concomitant]
  5. HALCION [Concomitant]
  6. BONALON (ALENDRONATE SODIUM) [Concomitant]
  7. MAGMITT (MAGNESIUM OXIDE) [Concomitant]
  8. MEILAX (ETHYL LOFLAZEPATE) [Concomitant]
  9. MEILAX (ETHYL LOFLAZEPATE) [Concomitant]
  10. YODEL S (SENNA) [Concomitant]
  11. LENDORMIN (BROTIZOLAM) [Concomitant]

REACTIONS (1)
  - HYPOMANIA [None]
